FAERS Safety Report 6793607-8 (Version None)
Quarter: 2010Q2

REPORT INFORMATION
  Report Type: 
  Country: None (occurrence: None)
  Receive Date: 20100624
  Receipt Date: 20090105
  Transmission Date: 20101027
  Serious: No
  Sender: FDA-Public Use
  Company Number: US-PFIZER INC-2008155619

PATIENT
  Sex: Male
  Weight: 64.8 kg

DRUGS (5)
  1. SUTENT [Suspect]
     Indication: RENAL CANCER STAGE IV
     Dosage: 50 MG, 1X/DAY
     Dates: start: 20070401
  2. CODEINE [Concomitant]
     Dosage: UNK
  3. TYLENOL [Concomitant]
     Dosage: UNK
  4. METHADONE HYDROCHLORIDE [Concomitant]
     Dosage: UNK
  5. OMEPRAZOLE [Concomitant]
     Dosage: UNK

REACTIONS (5)
  - CONSTIPATION [None]
  - HAEMOGLOBIN DECREASED [None]
  - PAIN [None]
  - PRURITUS [None]
  - RASH [None]
